FAERS Safety Report 4361751-0 (Version None)
Quarter: 2004Q2

REPORT INFORMATION
  Report Type: 
  Country: None (occurrence: None)
  Receive Date: 20040521
  Receipt Date: 20040308
  Transmission Date: 20050107
  Serious: No
  Sender: FDA-Public Use
  Company Number: US-GLAXOSMITHKLINE-A0501599A

PATIENT
  Age: 49 Year
  Sex: Male

DRUGS (3)
  1. WELLBUTRIN XL [Suspect]
     Indication: DEPRESSION
     Dosage: 300MG PER DAY
     Route: 048
     Dates: start: 20031201
  2. BEER [Suspect]
     Indication: DRUG USE FOR UNKNOWN INDICATION
     Dosage: 10CANS PER DAY
     Route: 048
     Dates: start: 20040229
  3. LEXAPRO [Concomitant]

REACTIONS (1)
  - DEPRESSION [None]
